FAERS Safety Report 7970595-X (Version None)
Quarter: 2011Q4

REPORT INFORMATION
  Report Type: 
  Country: None (occurrence: None)
  Receive Date: 20111212
  Receipt Date: 20111130
  Transmission Date: 20120403
  Serious: Yes (Other)
  Sender: FDA-Public Use
  Company Number: US-JNJFOC-20111006370

PATIENT
  Sex: Female
  Weight: 51.26 kg

DRUGS (2)
  1. SPORANOX [Suspect]
     Indication: SPUTUM INCREASED
     Route: 048
     Dates: start: 20100801
  2. SPORANOX [Suspect]
     Indication: MYCOTIC ALLERGY
     Route: 048
     Dates: start: 20100801

REACTIONS (3)
  - OFF LABEL USE [None]
  - INCORRECT DOSE ADMINISTERED [None]
  - MYOCARDIAL INFARCTION [None]
